FAERS Safety Report 9007562 (Version 1)
Quarter: 2013Q1

REPORT INFORMATION
  Report Type: Spontaneous
  Country: US (occurrence: US)
  Receive Date: 20130111
  Receipt Date: 20130111
  Transmission Date: 20140127
  Serious: Yes (Other)
  Sender: FDA-Public Use
  Company Number: US-009507513-0907USA03768

PATIENT
  Age: 15 Year
  Sex: Male
  Weight: 51.4 kg

DRUGS (1)
  1. SINGULAIR [Suspect]
     Indication: BRONCHOSPASM
     Dosage: 10 MG, QD
     Route: 048
     Dates: start: 20080213, end: 20080307

REACTIONS (1)
  - Depression [Recovered/Resolved]
